FAERS Safety Report 5536739-4 (Version None)
Quarter: 2007Q4

REPORT INFORMATION
  Report Type: 
  Country: None (occurrence: None)
  Receive Date: 20071206
  Receipt Date: 20070501
  Transmission Date: 20080405
  Serious: Yes (Hospitalization, Other)
  Sender: FDA-Public Use
  Company Number: US-AMGEN-STX222767

PATIENT
  Sex: Female

DRUGS (3)
  1. ENBREL [Suspect]
     Indication: RHEUMATOID ARTHRITIS
     Route: 058
     Dates: start: 20060926
  2. PLAQUENIL [Concomitant]
     Route: 065
     Dates: start: 20050101
  3. METHOTREXATE [Concomitant]
     Route: 065
     Dates: start: 20050101

REACTIONS (5)
  - CEREBROVASCULAR ACCIDENT [None]
  - CHILLS [None]
  - CYSTITIS [None]
  - PYREXIA [None]
  - URINARY RETENTION [None]
